FAERS Safety Report 6485400-0 (Version None)
Quarter: 2009Q4

REPORT INFORMATION
  Report Type: 
  Country: None (occurrence: None)
  Receive Date: 20091209
  Receipt Date: 20090625
  Transmission Date: 20100525
  Serious: No
  Sender: FDA-Public Use
  Company Number: US-AMGEN-KDL353273

PATIENT
  Sex: Male

DRUGS (2)
  1. ENBREL [Suspect]
     Indication: PSORIASIS
     Route: 058
  2. CLOBETASOL PROPIONATE [Concomitant]

REACTIONS (6)
  - ERYTHEMA [None]
  - PAIN IN EXTREMITY [None]
  - PSORIASIS [None]
  - SCAB [None]
  - SKIN IRRITATION [None]
  - URTICARIA [None]
